FAERS Safety Report 4847355-1 (Version None)
Quarter: 2005Q4

REPORT INFORMATION
  Report Type: 
  Country: None (occurrence: None)
  Receive Date: 20051207
  Receipt Date: 20051130
  Transmission Date: 20060501
  Serious: Yes (Disabling)
  Sender: FDA-Public Use
  Company Number: US-ROCHE-427211

PATIENT
  Age: 20 Year
  Sex: Male

DRUGS (1)
  1. ACCUTANE [Suspect]
     Indication: ACNE
     Route: 048
     Dates: start: 20030315

REACTIONS (7)
  - INFECTED CYST [None]
  - INJURY [None]
  - PAIN [None]
  - PURULENCE [None]
  - RASH PUSTULAR [None]
  - SCAR [None]
  - WOUND SECRETION [None]
